FAERS Safety Report 20742119 (Version 1)
Quarter: 2022Q2

REPORT INFORMATION
  Report Type: Report from Study
  Country: US (occurrence: US)
  Receive Date: 20220423
  Receipt Date: 20220423
  Transmission Date: 20220721
  Serious: Yes (Hospitalization, Other)
  Sender: FDA-Public Use
  Company Number: US-BRISTOL-MYERS SQUIBB COMPANY-2022-021681

PATIENT
  Age: 69 Year
  Sex: Female
  Weight: 77.11 kg

DRUGS (10)
  1. ELIQUIS [Suspect]
     Active Substance: APIXABAN
     Indication: Atrial fibrillation
     Dosage: DOSE : 5MG;     FREQ : TWICE A DAY
     Route: 048
     Dates: start: 202110, end: 202204
  2. LISINOPRIL [Concomitant]
     Active Substance: LISINOPRIL
     Indication: Product used for unknown indication
     Route: 065
  3. ATORVASTATIN [Concomitant]
     Active Substance: ATORVASTATIN
     Indication: Product used for unknown indication
     Route: 065
  4. LETROZOLE [Concomitant]
     Active Substance: LETROZOLE
     Indication: Product used for unknown indication
     Route: 065
  5. RETINOL [Concomitant]
     Active Substance: RETINOL
     Indication: Product used for unknown indication
     Route: 065
  6. C Zinc [Concomitant]
     Indication: Product used for unknown indication
     Route: 065
  7. COPPER [Concomitant]
     Active Substance: COPPER
     Indication: Product used for unknown indication
  8. SELENIUM [Concomitant]
     Active Substance: SELENIUM
     Indication: Product used for unknown indication
     Route: 065
  9. VITAMIN D3 [Concomitant]
     Active Substance: CHOLECALCIFEROL
     Indication: Product used for unknown indication
     Route: 065
  10. LOVENOX [Concomitant]
     Active Substance: ENOXAPARIN SODIUM
     Indication: Product used for unknown indication
     Route: 065
     Dates: start: 202204

REACTIONS (3)
  - Diarrhoea [Unknown]
  - Hepatic enzyme increased [Unknown]
  - Transient ischaemic attack [Unknown]

NARRATIVE: CASE EVENT DATE: 20211201
